FAERS Safety Report 14313926 (Version 1)
Quarter: 2017Q4

REPORT INFORMATION
  Report Type: Spontaneous
  Country: US (occurrence: US)
  Receive Date: 20171221
  Receipt Date: 20171221
  Transmission Date: 20180321
  Serious: No
  Sender: FDA-Public Use
  Company Number: US-SHIRE-US201730398

PATIENT
  Age: 67 Year
  Sex: Male

DRUGS (1)
  1. XIIDRA [Suspect]
     Active Substance: LIFITEGRAST
     Indication: DRY EYE
     Dosage: 1 GTT,OU 2X/DAY:BID
     Route: 047

REACTIONS (3)
  - Blood pressure increased [Unknown]
  - Dysgeusia [Unknown]
  - Inappropriate schedule of drug administration [Unknown]
